FAERS Safety Report 4504018-X (Version None)
Quarter: 2004Q4

REPORT INFORMATION
  Report Type: 
  Country: None (occurrence: None)
  Receive Date: 20041115
  Receipt Date: 20041104
  Transmission Date: 20050328
  Serious: Yes (Hospitalization, Other)
  Sender: FDA-Public Use
  Company Number: 04-11-1551

PATIENT
  Age: 60 Year
  Sex: Female

DRUGS (4)
  1. CLOZAPINE [Suspect]
     Indication: SCHIZOPHRENIA, PARANOID TYPE
     Dosage: 900-300MG QD ORAL
     Route: 048
  2. PHENYTOIN [Suspect]
     Dosage: 400 MG QD
  3. BENZTROPINE MESYLATE [Concomitant]
  4. RISPERIDONE [Concomitant]

REACTIONS (3)
  - GRANULOCYTOPENIA [None]
  - NEUTROPENIA [None]
  - THERAPY NON-RESPONDER [None]
